FAERS Safety Report 5398400-9 (Version None)
Quarter: 2007Q3

REPORT INFORMATION
  Report Type: 
  Country: None (occurrence: None)
  Receive Date: 20070726
  Receipt Date: 20070320
  Transmission Date: 20080115
  Serious: No
  Sender: FDA-Public Use
  Company Number: US-AMGEN-KDL218053

PATIENT
  Sex: Female
  Weight: 72.6 kg

DRUGS (9)
  1. PROCRIT [Suspect]
     Indication: ANAEMIA
     Dates: start: 20060101, end: 20061001
  2. PRANDIN [Concomitant]
  3. AVANDIA [Concomitant]
  4. ALTACE [Concomitant]
  5. TOPRAL [Concomitant]
  6. LIPITOR [Concomitant]
  7. HYDROCHLOROTHIAZIDE [Concomitant]
  8. UNSPECIFIED MEDICATION [Concomitant]
     Route: 047
  9. FENOFIBRATE [Concomitant]

REACTIONS (1)
  - SKIN DISCOLOURATION [None]
